FAERS Safety Report 6314380-3 (Version None)
Quarter: 2009Q3

REPORT INFORMATION
  Report Type: 
  Country: None (occurrence: None)
  Receive Date: 20090817
  Receipt Date: 20090817
  Transmission Date: 20100115
  Serious: Yes (Hospitalization)
  Sender: FDA-Public Use
  Company Number: None

PATIENT
  Age: 33 Year
  Sex: Male
  Weight: 68.0396 kg

DRUGS (4)
  1. LEXAPRO [Suspect]
     Indication: ANXIETY DISORDER
     Dosage: 10MG  QDAY PO
     Route: 048
     Dates: start: 20081012, end: 20081014
  2. LEXAPRO [Suspect]
     Indication: DEPRESSION
     Dosage: 10MG  QDAY PO
     Route: 048
     Dates: start: 20081012, end: 20081014
  3. BUSPAR [Concomitant]
  4. TRAZODONE HCL [Concomitant]

REACTIONS (4)
  - CHEST PAIN [None]
  - DELUSION [None]
  - PANIC REACTION [None]
  - SUICIDAL IDEATION [None]
